FAERS Safety Report 25754677 (Version 1)
Quarter: 2025Q3

REPORT INFORMATION
  Report Type: Report from Study
  Country: EU (occurrence: EU)
  Receive Date: 20250903
  Receipt Date: 20250903
  Transmission Date: 20251021
  Serious: Yes (Hospitalization)
  Sender: ABBVIE
  Company Number: EU-ABBVIE-6439986

PATIENT
  Age: 61 Year
  Sex: Male

DRUGS (2)
  1. CARBIDOPA\LEVODOPA [Suspect]
     Active Substance: CARBIDOPA\LEVODOPA
     Indication: Parkinson^s disease
     Route: 050
     Dates: start: 20250804
  2. CARBIDOPA\LEVODOPA [Suspect]
     Active Substance: CARBIDOPA\LEVODOPA

REACTIONS (15)
  - Cystitis [Recovered/Resolved]
  - Delirium [Not Recovered/Not Resolved]
  - Confusional state [Recovering/Resolving]
  - Hallucination [Not Recovered/Not Resolved]
  - Chromaturia [Unknown]
  - Mood altered [Not Recovered/Not Resolved]
  - Suspiciousness [Not Recovered/Not Resolved]
  - Cognitive disorder [Not Recovered/Not Resolved]
  - On and off phenomenon [Not Recovered/Not Resolved]
  - Fluid intake reduced [Unknown]
  - Stress [Unknown]
  - Dyskinesia [Unknown]
  - Muscle rigidity [Unknown]
  - Nocturia [Unknown]
  - Sleep disorder [Unknown]

NARRATIVE: CASE EVENT DATE: 20250801
